FAERS Safety Report 6424690-7 (Version None)
Quarter: 2009Q4

REPORT INFORMATION
  Report Type: 
  Country: None (occurrence: None)
  Receive Date: 20091103
  Receipt Date: 20091022
  Transmission Date: 20100525
  Serious: No
  Sender: FDA-Public Use
  Company Number: PHEH2009US12440

PATIENT
  Sex: Female
  Weight: 67.5 kg

DRUGS (5)
  1. EXJADE [Suspect]
     Indication: IRON OVERLOAD
     Dosage: 1500 MG, QD
     Route: 048
     Dates: start: 20090801, end: 20090923
  2. EXJADE [Suspect]
     Indication: BLOOD PRODUCT TRANSFUSION DEPENDENT
     Dosage: 1500 MG, QD
     Route: 048
     Dates: start: 20091022
  3. CELEBREX [Concomitant]
     Indication: ARTHRALGIA
     Dosage: 200 MG, BID
     Route: 048
  4. PREDNISONE [Concomitant]
     Indication: RHEUMATOID ARTHRITIS
     Dosage: 7.5 MG
     Route: 048
  5. PROCRIT                            /00909301/ [Concomitant]
     Indication: ANAEMIA
     Dosage: 40,000 U/WK
     Route: 058

REACTIONS (5)
  - BLOOD CREATININE INCREASED [None]
  - BLOOD UREA INCREASED [None]
  - HAEMOGLOBIN DECREASED [None]
  - KIDNEY INFECTION [None]
  - RENAL DISORDER [None]
